FAERS Safety Report 10201677 (Version 1)
Quarter: 2014Q2

REPORT INFORMATION
  Report Type: Spontaneous
  Country: FR (occurrence: FR)
  Receive Date: 20140528
  Receipt Date: 20140528
  Transmission Date: 20141212
  Serious: Yes (Other)
  Sender: FDA-Public Use
  Company Number: FR-BAUSCH-BL-2014-002453

PATIENT
  Age: 62 Year
  Sex: Female

DRUGS (1)
  1. YELLOX 0.9 MG/ML EYE DROPS, SOLUTION [Suspect]
     Indication: POSTOPERATIVE CARE
     Route: 047
     Dates: start: 20140409, end: 20140409

REACTIONS (2)
  - Anaphylactic shock [Recovering/Resolving]
  - Off label use [Unknown]
